FAERS Safety Report 5917074-9 (Version None)
Quarter: 2008Q4

REPORT INFORMATION
  Report Type: 
  Country: None (occurrence: None)
  Receive Date: 20081014
  Receipt Date: 20081006
  Transmission Date: 20090506
  Serious: Yes (Other)
  Sender: FDA-Public Use
  Company Number: BR-JNJFOC-20081002643

PATIENT
  Age: 83 Year
  Sex: Female

DRUGS (2)
  1. REMINYL ER [Suspect]
     Indication: VASCULAR DEMENTIA
     Route: 048
  2. REMINYL ER [Suspect]
     Indication: DEMENTIA ALZHEIMER'S TYPE
     Route: 048

REACTIONS (2)
  - DRUG PRESCRIBING ERROR [None]
  - NO ADVERSE EVENT [None]
